FAERS Safety Report 5077792-4 (Version None)
Quarter: 2006Q3

REPORT INFORMATION
  Report Type: 
  Country: None (occurrence: None)
  Receive Date: 20060810
  Receipt Date: 20060804
  Transmission Date: 20061208
  Serious: Yes (Other)
  Sender: FDA-Public Use
  Company Number: GB-MERCK-0608GBR00031

PATIENT
  Age: 79 Year
  Sex: Male
  Weight: 145 kg

DRUGS (13)
  1. FOSAMAX [Suspect]
     Indication: OSTEOPOROSIS PROPHYLAXIS
     Route: 048
     Dates: start: 20060612, end: 20060101
  2. AMLODIPINE BESYLATE [Concomitant]
     Route: 048
  3. ASPIRIN [Concomitant]
     Route: 048
  4. DOXAZOSIN MESYLATE [Concomitant]
     Route: 048
  5. VALPROATE SODIUM AND VALPROIC ACID [Concomitant]
     Route: 048
  6. FLUTICASONE PROPIONATE [Concomitant]
     Route: 055
  7. OMEPRAZOLE [Concomitant]
     Route: 048
  8. OXYBUTYNIN CHLORIDE [Concomitant]
     Route: 048
  9. PREDNISOLONE [Concomitant]
     Route: 048
  10. RAMIPRIL [Concomitant]
     Route: 048
  11. ALBUTEROL [Concomitant]
     Route: 055
  12. SALMETEROL [Concomitant]
     Route: 055
  13. SIMVASTATIN [Concomitant]
     Route: 048

REACTIONS (5)
  - ARTHRALGIA [None]
  - DYSPEPSIA [None]
  - DYSPNOEA [None]
  - HEADACHE [None]
  - PHARYNGOLARYNGEAL PAIN [None]
